FAERS Safety Report 11153590 (Version 1)
Quarter: 2015Q2

REPORT INFORMATION
  Report Type: Spontaneous
  Country: US (occurrence: US)
  Receive Date: 20150602
  Receipt Date: 20150602
  Transmission Date: 20150821
  Serious: No
  Sender: FDA-Public Use
  Company Number: US-NOVEN PHARMACEUTICALS, INC.-14US009571

PATIENT
  Age: 7 Year
  Sex: Male

DRUGS (2)
  1. DAYTRANA [Suspect]
     Active Substance: METHYLPHENIDATE
     Dosage: 15 MG, QD SCHOOL DAYS
     Dates: start: 201403, end: 2014
  2. DAYTRANA [Suspect]
     Active Substance: METHYLPHENIDATE
     Indication: PRODUCT USED FOR UNKNOWN INDICATION
     Dosage: 10 MG, QD SCHOOL DAYS
     Dates: start: 2014

REACTIONS (3)
  - Anxiety [Unknown]
  - Hypersensitivity [Unknown]
  - Depressed mood [Unknown]

NARRATIVE: CASE EVENT DATE: 201403
